FAERS Safety Report 9368830 (Version 2)
Quarter: 2013Q3

REPORT INFORMATION
  Report Type: Report from Study
  Country: FR (occurrence: FR)
  Receive Date: 20130626
  Receipt Date: 20130801
  Transmission Date: 20140515
  Serious: Yes (Death)
  Sender: FDA-Public Use
  Company Number: FR-ROCHE-1241218

PATIENT
  Sex: Male
  Weight: 42 kg

DRUGS (46)
  1. RITUXIMAB [Suspect]
     Indication: B-CELL LYMPHOMA
     Route: 065
     Dates: end: 200711
  2. RITUXIMAB [Suspect]
     Route: 065
     Dates: start: 20090217
  3. RITUXIMAB [Suspect]
     Route: 065
     Dates: start: 20090311
  4. RITUXIMAB [Suspect]
     Route: 065
     Dates: start: 20090401
  5. RITUXIMAB [Suspect]
     Route: 065
     Dates: start: 20101207
  6. RITUXIMAB [Suspect]
     Route: 065
     Dates: start: 20110105
  7. RITUXIMAB [Suspect]
     Route: 065
     Dates: start: 20110217
  8. RITUXIMAB [Suspect]
     Route: 065
     Dates: start: 20110311
  9. RITUXIMAB [Suspect]
     Route: 065
     Dates: start: 20110412
  10. RITUXIMAB [Suspect]
     Route: 065
     Dates: start: 20110510
  11. ENDOXAN [Suspect]
     Indication: PRODUCT USED FOR UNKNOWN INDICATION
     Route: 065
     Dates: start: 20090217, end: 20090401
  12. ENDOXAN [Suspect]
     Route: 065
     Dates: start: 20090311
  13. ENDOXAN [Suspect]
     Route: 065
     Dates: start: 20090401
  14. ENDOXAN [Suspect]
     Route: 065
     Dates: start: 20110510
  15. ENDOXAN [Suspect]
     Route: 065
     Dates: start: 20120224
  16. ONCOVIN [Suspect]
     Indication: PRODUCT USED FOR UNKNOWN INDICATION
     Route: 065
     Dates: start: 20090217, end: 20090401
  17. ONCOVIN [Suspect]
     Route: 065
     Dates: start: 20090217
  18. ONCOVIN [Suspect]
     Route: 065
     Dates: start: 20090311
  19. ADRIAMYCIN [Concomitant]
     Route: 065
     Dates: end: 200509
  20. PREDNISONE [Concomitant]
     Route: 065
     Dates: end: 200509
  21. SOLU-MEDROL [Concomitant]
     Route: 065
     Dates: start: 20090217
  22. SOLU-MEDROL [Concomitant]
     Route: 065
     Dates: start: 20090311
  23. SOLU-MEDROL [Concomitant]
     Route: 065
     Dates: start: 20090401
  24. RIBOMUSTIN [Concomitant]
     Route: 065
     Dates: start: 20090519
  25. RIBOMUSTIN [Concomitant]
     Route: 065
     Dates: start: 20090609
  26. RIBOMUSTIN [Concomitant]
     Route: 065
     Dates: start: 20090629
  27. MITOXANTRONE [Concomitant]
     Route: 065
     Dates: start: 20101207
  28. MITOXANTRONE [Concomitant]
     Route: 065
     Dates: start: 20110105
  29. MITOXANTRONE [Concomitant]
     Route: 065
     Dates: start: 20110217
  30. MITOXANTRONE [Concomitant]
     Route: 065
     Dates: start: 20110311
  31. MITOXANTRONE [Concomitant]
     Route: 065
     Dates: start: 20110412
  32. MITOXANTRONE [Concomitant]
     Route: 065
     Dates: start: 20110510
  33. MITOXANTRONE [Concomitant]
     Route: 065
     Dates: start: 20110510
  34. MITOXANTRONE [Concomitant]
     Route: 065
     Dates: start: 20120224
  35. FLUDARABINE [Concomitant]
     Route: 065
     Dates: start: 20110510
  36. FLUDARABINE [Concomitant]
     Route: 065
     Dates: start: 20120224
  37. BACTRIM FORTE [Concomitant]
     Dosage: 1 DF IN THE MORNING ON MONDAYS WEDNESDAYS FRIDAYS
     Route: 065
  38. ZELITREX [Concomitant]
     Dosage: 1 DF IN THE MORNING 1 DF IN THE EVENING
     Route: 065
  39. CHLORAMINOPHENE [Concomitant]
     Route: 065
     Dates: start: 20101207
  40. CHLORAMINOPHENE [Concomitant]
     Route: 065
     Dates: start: 20110105
  41. CHLORAMINOPHENE [Concomitant]
     Route: 065
     Dates: start: 20110217
  42. CHLORAMINOPHENE [Concomitant]
     Route: 065
     Dates: start: 20110311
  43. CHLORAMINOPHENE [Concomitant]
     Route: 065
     Dates: start: 20110412
  44. CHLORAMINOPHENE [Concomitant]
     Route: 065
     Dates: start: 20110510
  45. INEXIUM [Concomitant]
     Dosage: 1 DF IN THE EVENING
     Route: 065
  46. XANAX [Concomitant]
     Dosage: 0.5 DF IN THE MORNING AND 0.5 DF IN THE EVENING
     Route: 065

REACTIONS (2)
  - Disease progression [Fatal]
  - Oedema peripheral [Unknown]
